FAERS Safety Report 18743892 (Version 2)
Quarter: 2025Q4

REPORT INFORMATION
  Report Type: Spontaneous
  Country: US (occurrence: US)
  Receive Date: 20210114
  Receipt Date: 20251204
  Transmission Date: 20260117
  Serious: Yes (Other)
  Sender: BIOMARIN
  Company Number: US-BIOMARINAP-US-2021-134403

PATIENT
  Age: 27 Year
  Sex: Male

DRUGS (2)
  1. LARONIDASE [Suspect]
     Active Substance: LARONIDASE
     Indication: Mucopolysaccharidosis I
     Dosage: 58 (UNITS NOT PROVIDED) TOTAL DOSE ADMINISTERED, QW
     Dates: start: 200306
  2. LARONIDASE [Suspect]
     Active Substance: LARONIDASE
     Dosage: 58 MG, QW
     Dates: start: 20181016

REACTIONS (1)
  - Autism spectrum disorder [Not Recovered/Not Resolved]
